FAERS Safety Report 6253178-1 (Version None)
Quarter: 2009Q2

REPORT INFORMATION
  Report Type: 
  Country: None (occurrence: None)
  Receive Date: 20090625
  Receipt Date: 20080701
  Transmission Date: 20091009
  Serious: Yes (Other)
  Sender: FDA-Public Use
  Company Number: DSU-2008-00992

PATIENT

DRUGS (2)
  1. BENICAR [Suspect]
     Indication: DRUG USE FOR UNKNOWN INDICATION
     Dosage: 40 MG (40 MG,QD),PER ORAL
     Route: 048
     Dates: start: 20080601, end: 20080601
  2. ACE INHIBITOR (ACE INHIBITOR NOS) [Concomitant]

REACTIONS (2)
  - MALAISE [None]
  - RENAL FAILURE [None]
